FAERS Safety Report 7636311-6 (Version None)
Quarter: 2011Q3

REPORT INFORMATION
  Report Type: 
  Country: None (occurrence: None)
  Receive Date: 20110726
  Receipt Date: 20110706
  Transmission Date: 20111222
  Serious: Yes (Hospitalization)
  Sender: FDA-Public Use
  Company Number: US-GLAXOSMITHKLINE-A0878765A

PATIENT
  Age: 57 Year
  Sex: Male
  Weight: 92.7 kg

DRUGS (5)
  1. AVANDIA [Suspect]
     Indication: DIABETES MELLITUS
     Route: 048
  2. AVANDAMET [Suspect]
     Indication: DIABETES MELLITUS
     Route: 048
     Dates: end: 20070101
  3. LISINOPRIL [Concomitant]
  4. INSULIN [Concomitant]
  5. BUPROPION HCL [Concomitant]

REACTIONS (4)
  - FLUID RETENTION [None]
  - CORONARY ARTERY DISEASE [None]
  - CARDIAC ARREST [None]
  - FLUID OVERLOAD [None]
